FAERS Safety Report 13894653 (Version 1)
Quarter: 2017Q3

REPORT INFORMATION
  Report Type: Spontaneous
  Country: CH (occurrence: CH)
  Receive Date: 20170823
  Receipt Date: 20170823
  Transmission Date: 20171127
  Serious: Yes (Hospitalization)
  Sender: FDA-Public Use
  Company Number: CH-ROCHE-1980140

PATIENT
  Age: 84 Year
  Sex: Female
  Weight: 82.4 kg

DRUGS (10)
  1. TORASEMID [Concomitant]
     Active Substance: TORSEMIDE
     Dosage: REPORTED AS TORASEMID SANDOZ ECO
     Route: 048
  2. METOLAZON [Concomitant]
     Active Substance: METOLAZONE
     Route: 048
  3. ROCEPHIN [Suspect]
     Active Substance: CEFTRIAXONE SODIUM
     Indication: PRODUCT USED FOR UNKNOWN INDICATION
     Dosage: AMPOULES
     Route: 041
     Dates: start: 20170719, end: 20170720
  4. AMLODIPINE [Concomitant]
     Active Substance: AMLODIPINE BESYLATE
     Dosage: REPORTED AS AMLODIPIN-MEPHA 10
     Route: 048
  5. CALCIUM CARBONATE. [Concomitant]
     Active Substance: CALCIUM CARBONATE
     Route: 048
  6. NOVORAPID [Concomitant]
     Active Substance: INSULIN ASPART
     Route: 058
  7. NEO-MERCAZOLE [Concomitant]
     Active Substance: CARBIMAZOLE
     Route: 048
  8. MARCOUMAR [Concomitant]
     Active Substance: PHENPROCOUMON
     Route: 048
  9. CONCOR [Concomitant]
     Active Substance: BISOPROLOL FUMARATE
     Route: 048
  10. ATORVASTATIN [Concomitant]
     Active Substance: ATORVASTATIN
     Route: 048

REACTIONS (6)
  - Hypersensitivity [Recovered/Resolved]
  - Hyperventilation [Recovered/Resolved]
  - Hypoxia [Recovered/Resolved]
  - Dyspnoea [Recovered/Resolved]
  - Chest discomfort [Recovered/Resolved]
  - Hypotension [Recovered/Resolved]

NARRATIVE: CASE EVENT DATE: 20170719
